FAERS Safety Report 7069601-9 (Version None)
Quarter: 2010Q4

REPORT INFORMATION
  Report Type: 
  Country: None (occurrence: None)
  Receive Date: 20101028
  Receipt Date: 20100421
  Transmission Date: 20110411
  Serious: No
  Sender: FDA-Public Use
  Company Number: US-WYE-H14564010

PATIENT
  Sex: Female

DRUGS (3)
  1. PROTONIX [Suspect]
  2. CLORAZEPATE DIPOTASSIUM [Concomitant]
  3. LISINOPRIL [Concomitant]

REACTIONS (1)
  - DRUG INEFFECTIVE [None]
